FAERS Safety Report 9393661 (Version 2)
Quarter: 2013Q3

REPORT INFORMATION
  Report Type: Spontaneous
  Country: JP (occurrence: JP)
  Receive Date: 20130710
  Receipt Date: 20130723
  Transmission Date: 20140515
  Serious: No
  Sender: FDA-Public Use
  Company Number: JP-GLAXOSMITHKLINE-B0905678A

PATIENT
  Sex: Male

DRUGS (5)
  1. LAMICTAL [Suspect]
     Indication: PSYCHOTIC DISORDER
     Route: 048
  2. LIMAS [Concomitant]
     Dosage: 400MG TWICE PER DAY
     Route: 048
  3. LEXOTAN [Concomitant]
     Dosage: 2MG TWICE PER DAY
     Route: 048
  4. ROHYPNOL [Concomitant]
     Dosage: 2MG PER DAY
     Route: 048
  5. VEGETAMIN-B [Concomitant]
     Route: 048

REACTIONS (2)
  - Amnesia [Not Recovered/Not Resolved]
  - Memory impairment [Unknown]
